FAERS Safety Report 8524924-9 (Version None)
Quarter: 2012Q3

REPORT INFORMATION
  Report Type: 
  Country: None (occurrence: None)
  Receive Date: 20120720
  Receipt Date: 20120716
  Transmission Date: 20120928
  Serious: Yes (Other)
  Sender: FDA-Public Use
  Company Number: US-009507513-1207USA006447

PATIENT

DRUGS (3)
  1. SAPHRIS [Suspect]
     Indication: BIPOLAR DISORDER
     Dosage: 10 MG, UNK
     Route: 060
     Dates: start: 20120401, end: 20120601
  2. SAPHRIS [Suspect]
     Indication: PSYCHOTIC DISORDER
  3. SAPHRIS [Suspect]
     Indication: ANGER

REACTIONS (2)
  - SUICIDE ATTEMPT [None]
  - HOMICIDE [None]
